FAERS Safety Report 15379655 (Version 1)
Quarter: 2018Q3

REPORT INFORMATION
  Report Type: Spontaneous
  Country: US (occurrence: US)
  Receive Date: 20180913
  Receipt Date: 20180913
  Transmission Date: 20181010
  Serious: No
  Sender: FDA-Public Use
  Company Number: US-BAYER-2018-171694

PATIENT
  Age: 18 Year
  Sex: Female

DRUGS (1)
  1. KYLEENA [Suspect]
     Active Substance: LEVONORGESTREL
     Indication: INTRA-UTERINE CONTRACEPTIVE DEVICE INSERTION
     Dosage: 17.5 MCG/24HR, CONT
     Route: 015
     Dates: start: 20180809, end: 20180906

REACTIONS (2)
  - Nausea [None]
  - Vomiting [None]

NARRATIVE: CASE EVENT DATE: 2018
